FAERS Safety Report 18520037 (Version 1)
Quarter: 2020Q4

REPORT INFORMATION
  Report Type: Spontaneous
  Country: US (occurrence: US)
  Receive Date: 20201119
  Receipt Date: 20201119
  Transmission Date: 20210114
  Serious: No
  Sender: FDA-Public Use
  Company Number: US-ASTRAZENECA-2020SF39453

PATIENT
  Age: 28573 Day
  Sex: Female
  Weight: 51.3 kg

DRUGS (9)
  1. FOLIC ACID. [Concomitant]
     Active Substance: FOLIC ACID
     Indication: CONSTIPATION
     Route: 048
  2. CALCIUM MAGNESIUM AND ZINC [Concomitant]
     Indication: MULTI-VITAMIN DEFICIENCY
     Dosage: DAILY
     Route: 048
  3. VITAMIN D [Concomitant]
     Active Substance: VITAMIN D NOS
     Indication: HYPOVITAMINOSIS
     Route: 048
  4. VITAMIN C [Concomitant]
     Active Substance: ASCORBIC ACID
     Indication: HYPOVITAMINOSIS
  5. PROBIOTIC [Concomitant]
     Active Substance: PROBIOTICS NOS
     Dosage: 100 MILLION ORGANISMS DAILY
  6. ALLERFLEX [Concomitant]
     Indication: MULTIPLE ALLERGIES
     Dosage: 180.0MG AS REQUIRED
     Route: 048
  7. IRON [Concomitant]
     Active Substance: IRON
     Indication: HYPOVITAMINOSIS
     Route: 048
  8. CHEWABLE MULTIVITAMIN [Concomitant]
     Indication: MULTI-VITAMIN DEFICIENCY
     Dosage: 2 MULTIVITAMINS DAILY
     Route: 048
  9. CALQUENCE [Suspect]
     Active Substance: ACALABRUTINIB
     Indication: CHRONIC LYMPHOCYTIC LEUKAEMIA
     Route: 048
     Dates: start: 20200905

REACTIONS (5)
  - Ear discomfort [Not Recovered/Not Resolved]
  - Vertigo [Recovered/Resolved]
  - Nausea [Recovered/Resolved]
  - Migraine [Not Recovered/Not Resolved]
  - Contusion [Not Recovered/Not Resolved]

NARRATIVE: CASE EVENT DATE: 20200905
